FAERS Safety Report 25518169 (Version 1)
Quarter: 2025Q3

REPORT INFORMATION
  Report Type: Spontaneous
  Country: EU (occurrence: EU)
  Receive Date: 20250704
  Receipt Date: 20250704
  Transmission Date: 20251021
  Serious: Yes (Other)
  Sender: UCB
  Company Number: None

PATIENT

DRUGS (1)
  1. BIMZELX [Suspect]
     Active Substance: BIMEKIZUMAB-BKZX
     Indication: Psoriasis

REACTIONS (5)
  - Pancytopenia [Recovered/Resolved]
  - Oral fungal infection [Recovered/Resolved]
  - Chalazion [Recovered/Resolved]
  - Hordeolum [Recovered/Resolved]
  - Nasopharyngitis [Recovered/Resolved]
